FAERS Safety Report 7933621-X (Version None)
Quarter: 2011Q4

REPORT INFORMATION
  Report Type: 
  Country: None (occurrence: None)
  Receive Date: 20111122
  Receipt Date: 20111109
  Transmission Date: 20120403
  Serious: Yes (Hospitalization)
  Sender: FDA-Public Use
  Company Number: PHHY2011BE099008

PATIENT
  Age: 72 Year
  Sex: Female

DRUGS (8)
  1. ZITHROMAX [Concomitant]
  2. ONBREZ [Suspect]
     Indication: CHRONIC OBSTRUCTIVE PULMONARY DISEASE
     Dates: start: 20110701
  3. IMODIUM [Concomitant]
  4. FLUTICASONE PROPIONATE/SALMETEROL [Concomitant]
     Indication: CHRONIC OBSTRUCTIVE PULMONARY DISEASE
  5. DUOVENT [Concomitant]
  6. PANTOPRAZOLE [Concomitant]
     Dosage: 40 MG, QD
  7. SPIRIVA [Concomitant]
     Indication: CHRONIC OBSTRUCTIVE PULMONARY DISEASE
  8. ZOLEDRONOC ACID [Concomitant]

REACTIONS (9)
  - CHRONIC OBSTRUCTIVE PULMONARY DISEASE [None]
  - DYSPNOEA [None]
  - HYPOXIA [None]
  - EXERCISE TOLERANCE DECREASED [None]
  - INSOMNIA [None]
  - OBSTRUCTIVE AIRWAYS DISORDER [None]
  - TOTAL LUNG CAPACITY DECREASED [None]
  - OXYGEN SATURATION DECREASED [None]
  - CARDIAC FAILURE [None]
